FAERS Safety Report 10395278 (Version 2)
Quarter: 2014Q3

REPORT INFORMATION
  Report Type: Report from Study
  Country: BR (occurrence: BR)
  Receive Date: 20140820
  Receipt Date: 20140902
  Transmission Date: 20150326
  Serious: Yes (Hospitalization, Other)
  Sender: FDA-Public Use
  Company Number: PHHY2014BR102509

PATIENT
  Age: 53 Year
  Sex: Female
  Weight: 52 kg

DRUGS (4)
  1. LOSARTAN [Concomitant]
     Active Substance: LOSARTAN
     Indication: HYPERTENSION
     Dosage: 2 DF, DAILY
     Dates: start: 2013
  2. HYDREA [Suspect]
     Active Substance: HYDROXYUREA
     Dosage: UNK UKN, UNK
  3. CARVEDILOL. [Concomitant]
     Active Substance: CARVEDILOL
     Dosage: 1 DF, BID
     Dates: start: 2013
  4. EXJADE [Suspect]
     Active Substance: DEFERASIROX
     Indication: SICKLE CELL ANAEMIA
     Dosage: 4 DF, DAILY
     Route: 048
     Dates: start: 201406

REACTIONS (4)
  - Pain [Recovering/Resolving]
  - Sickle cell anaemia with crisis [Recovering/Resolving]
  - Asthenia [Unknown]
  - Blood pressure increased [Unknown]

NARRATIVE: CASE EVENT DATE: 201407
